FAERS Safety Report 4351011-6 (Version None)
Quarter: 2004Q2

REPORT INFORMATION
  Report Type: 
  Country: None (occurrence: None)
  Receive Date: 20040427
  Receipt Date: 20040414
  Transmission Date: 20050107
  Serious: Yes (Hospitalization)
  Sender: FDA-Public Use
  Company Number: 2004025785

PATIENT
  Age: 73 Year
  Sex: Female

DRUGS (4)
  1. NEURONTIN [Suspect]
     Indication: ILL-DEFINED DISORDER
     Dosage: ORAL
     Route: 048
     Dates: start: 20040121, end: 20040305
  2. HYDROMORPHONE HCL [Concomitant]
  3. TRAMADOL/ACETAMINOPHEN (PARACETAMOL/TRAMADOL) [Concomitant]
  4. ACETAMINOPHEN [Concomitant]

REACTIONS (1)
  - HEPATITIS CHOLESTATIC [None]
